FAERS Safety Report 10052346 (Version 1)
Quarter: 2014Q2

REPORT INFORMATION
  Report Type: Spontaneous
  Country: NO (occurrence: NO)
  Receive Date: 20140402
  Receipt Date: 20140402
  Transmission Date: 20141212
  Serious: Yes (Hospitalization)
  Sender: FDA-Public Use
  Company Number: NO-JNJFOC-20140315691

PATIENT
  Sex: 0

DRUGS (5)
  1. DOXORUBICIN HYDROCHLORIDE [Suspect]
     Indication: OSTEOSARCOMA
     Dosage: OVER 24 HOURS, CONTINUOUS INFUSION
     Route: 042
  2. METHOTREXATE [Suspect]
     Indication: OSTEOSARCOMA
     Dosage: 12 G/M2
     Route: 065
  3. CISPLATIN [Suspect]
     Indication: OSTEOSARCOMA
     Dosage: OVER 48 HOURS
     Route: 065
  4. IFOSFAMIDE [Suspect]
     Indication: OSTEOSARCOMA
     Dosage: 15 G/M2, CONTINUOUS INFUSION FOR 5 DAYS
     Route: 065
  5. LEUCOVORIN [Concomitant]
     Route: 065

REACTIONS (3)
  - Renal failure [Unknown]
  - Blood disorder [Unknown]
  - Off label use [Unknown]
